FAERS Safety Report 5476884-5 (Version None)
Quarter: 2007Q4

REPORT INFORMATION
  Report Type: 
  Country: None (occurrence: None)
  Receive Date: 20071004
  Receipt Date: 20070926
  Transmission Date: 20080405
  Serious: Yes (Hospitalization)
  Sender: FDA-Public Use
  Company Number: FR-BAXTER-2007BH007968

PATIENT
  Age: 85 Year
  Sex: Female

DRUGS (4)
  1. EXTRANEAL [Suspect]
     Indication: FLUID OVERLOAD
     Route: 033
  2. DIANEAL PD-1 [Concomitant]
     Indication: PERITONEAL DIALYSIS
     Route: 033
  3. NUTRINEAL [Concomitant]
     Indication: PERITONEAL DIALYSIS
     Route: 033
  4. INSULIN [Concomitant]

REACTIONS (2)
  - DEVICE INTERACTION [None]
  - HYPOGLYCAEMIA [None]
